FAERS Safety Report 7632886 (Version 33)
Quarter: 2013Q1

REPORT INFORMATION
  Report Type: Spontaneous
  Country: CA (occurrence: CA)
  Receive Date: 20101018
  Receipt Date: 20130227
  Transmission Date: 20140127
  Serious: Yes (Other)
  Sender: FDA-Public Use
  Company Number: CA-ROCHE-GNE307873

PATIENT
  Age: 55 None
  Sex: Female

DRUGS (6)
  1. XOLAIR [Suspect]
     Indication: ASTHMA
     Route: 058
     Dates: start: 20100616
  2. XOLAIR [Suspect]
     Route: 058
     Dates: start: 20100616
  3. XOLAIR [Suspect]
     Route: 065
     Dates: start: 20120912
  4. XOLAIR [Suspect]
     Route: 065
     Dates: start: 20121003
  5. PREDNISONE [Concomitant]
     Indication: PRODUCT USED FOR UNKNOWN INDICATION
  6. VENTOLIN [Concomitant]
     Route: 065

REACTIONS (38)
  - Pneumonia [Unknown]
  - Bronchitis [Recovering/Resolving]
  - Fatigue [Unknown]
  - Productive cough [Unknown]
  - Lung disorder [Unknown]
  - Dry skin [Unknown]
  - Skin warm [Unknown]
  - Depression [Unknown]
  - Infection [Unknown]
  - Breath sounds abnormal [Unknown]
  - Chest discomfort [Unknown]
  - Animal bite [Unknown]
  - Gastritis [Unknown]
  - Cold sweat [Unknown]
  - Nausea [Unknown]
  - Heart rate increased [Unknown]
  - Pallor [Unknown]
  - Rales [Unknown]
  - Drug ineffective [Unknown]
  - Pleural rub [Unknown]
  - Abnormal faeces [Unknown]
  - Tooth disorder [Unknown]
  - Nasopharyngitis [Unknown]
  - Asthenia [Unknown]
  - Cough [Unknown]
  - Wheezing [Unknown]
  - Breath sounds abnormal [Unknown]
  - Cyanosis [Unknown]
  - Dyspnoea exertional [Unknown]
  - Skin discolouration [Unknown]
  - Myalgia [Unknown]
  - Arthralgia [Unknown]
  - Dizziness [Unknown]
  - Blood pressure decreased [Unknown]
  - Bronchitis viral [Recovering/Resolving]
  - Elevated mood [Unknown]
  - Body temperature decreased [Unknown]
  - Respiratory rate increased [Unknown]
